FAERS Safety Report 8624609-4 (Version None)
Quarter: 2012Q3

REPORT INFORMATION
  Report Type: 
  Country: None (occurrence: None)
  Receive Date: 20120827
  Receipt Date: 20120821
  Transmission Date: 20120928
  Serious: Yes (Other)
  Sender: FDA-Public Use
  Company Number: CA-PFIZER INC-2012204748

PATIENT
  Age: 31 Year
  Sex: Female

DRUGS (1)
  1. DEPO-PROVERA [Suspect]
     Dosage: UNK
     Dates: start: 19990101

REACTIONS (10)
  - LETHARGY [None]
  - MUSCLE SPASMS [None]
  - ARTHRALGIA [None]
  - FATIGUE [None]
  - JOINT SWELLING [None]
  - OSTEOPOROSIS [None]
  - HEADACHE [None]
  - FLATULENCE [None]
  - BONE PAIN [None]
  - MYALGIA [None]
